FAERS Safety Report 12166081 (Version 1)
Quarter: 2016Q1

REPORT INFORMATION
  Report Type: Spontaneous
  Country: US (occurrence: US)
  Receive Date: 20160309
  Receipt Date: 20160309
  Transmission Date: 20160526
  Serious: No
  Sender: FDA-Public Use
  Company Number: US-BAYER-2016-036133

PATIENT
  Age: 87 Year
  Sex: Female
  Weight: 40.82 kg

DRUGS (5)
  1. LOTRIMIN ULTRA ANTIFUNGAL [Suspect]
     Active Substance: BUTENAFINE HYDROCHLORIDE
     Indication: TINEA PEDIS
     Dosage: 1 DF, TWICE DAILY FOR 2 WEEKS AND THEN TO USE IT JUST ONCE A DAY AFTER THAT
     Route: 061
  2. LOTRIMIN ULTRA ANTIFUNGAL [Suspect]
     Active Substance: BUTENAFINE HYDROCHLORIDE
     Indication: TINEA PEDIS
  3. PEPCID [Concomitant]
     Active Substance: FAMOTIDINE
  4. PREDNISONE. [Concomitant]
     Active Substance: PREDNISONE
  5. LOTRIMIN ULTRA ANTIFUNGAL [Suspect]
     Active Substance: BUTENAFINE HYDROCHLORIDE
     Indication: TINEA PEDIS

REACTIONS (1)
  - Product use issue [None]
